FAERS Safety Report 9653157 (Version 1)
Quarter: 2013Q4

REPORT INFORMATION
  Report Type: Spontaneous
  Country: US (occurrence: US)
  Receive Date: 20131029
  Receipt Date: 20131029
  Transmission Date: 20140711
  Serious: No
  Sender: FDA-Public Use
  Company Number: US-TEVA-441379USA

PATIENT
  Age: 38 Year
  Sex: Female
  Weight: 72.64 kg

DRUGS (5)
  1. PLAN B ONE-STEP [Suspect]
     Indication: POST COITAL CONTRACEPTION
     Dosage: 1.5 MILLIGRAM DAILY;
     Route: 048
     Dates: start: 20130928, end: 20130928
  2. PLAN B ONE-STEP [Suspect]
     Dosage: 1.5 MILLIGRAM DAILY;
     Route: 048
     Dates: start: 20131016, end: 20131016
  3. MULTIVITAMIN [Concomitant]
     Indication: SUPPLEMENTATION THERAPY
  4. FAT FIGHTERS WEIGHT LOSS SUPPLEMENT [Concomitant]
     Indication: WEIGHT DECREASED
  5. THE GREENS [Concomitant]
     Indication: SUPPLEMENTATION THERAPY

REACTIONS (4)
  - Feeling hot [Not Recovered/Not Resolved]
  - Dizziness [Not Recovered/Not Resolved]
  - Breast tenderness [Not Recovered/Not Resolved]
  - Menstruation irregular [Not Recovered/Not Resolved]
